FAERS Safety Report 11050858 (Version 1)
Quarter: 2015Q2

REPORT INFORMATION
  Report Type: Spontaneous
  Country: US (occurrence: US)
  Receive Date: 20150421
  Receipt Date: 20150421
  Transmission Date: 20150821
  Serious: Yes (Hospitalization, Other)
  Sender: FDA-Public Use
  Company Number: US-AMGEN-USASP2015036715

PATIENT
  Sex: Female

DRUGS (1)
  1. PROLIA [Suspect]
     Active Substance: DENOSUMAB
     Indication: BONE DENSITY ABNORMAL
     Dosage: UNK UNK, Q6MO
     Route: 065

REACTIONS (13)
  - Fall [Unknown]
  - Tooth disorder [Unknown]
  - Blood cholesterol abnormal [Unknown]
  - Hypertension [Unknown]
  - Gingival pain [Unknown]
  - Mastication disorder [Unknown]
  - Confusional state [Unknown]
  - Transient ischaemic attack [Unknown]
  - Knee arthroplasty [Unknown]
  - Diabetic neuropathy [Unknown]
  - Tooth fracture [Unknown]
  - Foot deformity [Unknown]
  - Hypertonic bladder [Unknown]

NARRATIVE: CASE EVENT DATE: 2014
